FAERS Safety Report 19632758 (Version 1)
Quarter: 2021Q3

REPORT INFORMATION
  Report Type: Spontaneous
  Country: US (occurrence: US)
  Receive Date: 20210730
  Receipt Date: 20210730
  Transmission Date: 20211014
  Serious: Yes (Other)
  Sender: FDA-Public Use
  Company Number: US-NOVEN PHARMACEUTICALS, INC.-2021US000019

PATIENT
  Age: 58 Year
  Sex: Female
  Weight: 102.04 kg

DRUGS (10)
  1. COMBIPATCH [Suspect]
     Active Substance: ESTRADIOL\NORETHINDRONE ACETATE
     Indication: HORMONE LEVEL ABNORMAL
  2. TEMAZEPAM. [Concomitant]
     Active Substance: TEMAZEPAM
     Indication: INSOMNIA
     Dosage: UNK
  3. BUTALBITAL, ACETAMINOPHEN, AND CAFFEINE [Concomitant]
     Active Substance: ACETAMINOPHEN\BUTALBITAL\CAFFEINE
     Indication: TENSION HEADACHE
  4. COMBIPATCH [Suspect]
     Active Substance: ESTRADIOL\NORETHINDRONE ACETATE
     Indication: OFF LABEL USE
  5. OZEMPIC [Concomitant]
     Active Substance: SEMAGLUTIDE
     Indication: WEIGHT
     Dosage: 0.50 UNK
  6. VALSARTAN. [Concomitant]
     Active Substance: VALSARTAN
     Indication: HYPERTENSION
     Dosage: UNK
     Dates: start: 202011
  7. CITALOPRAM [Concomitant]
     Active Substance: CITALOPRAM HYDROBROMIDE
     Indication: PRODUCT USED FOR UNKNOWN INDICATION
     Dosage: UNK
  8. TEMAZEPAM. [Concomitant]
     Active Substance: TEMAZEPAM
     Indication: FEELING OF RELAXATION
  9. COMBIPATCH [Suspect]
     Active Substance: ESTRADIOL\NORETHINDRONE ACETATE
     Indication: CORTISOL DECREASED
     Dosage: 0.05/0.14MG, 2/WEEK
     Route: 062
     Dates: start: 20201218
  10. BUTALBITAL, ACETAMINOPHEN, AND CAFFEINE [Concomitant]
     Active Substance: ACETAMINOPHEN\BUTALBITAL\CAFFEINE
     Indication: ANXIETY
     Dosage: 1?2 PILLSBID
     Route: 048

REACTIONS (13)
  - Product residue present [Not Recovered/Not Resolved]
  - Nipple pain [Recovered/Resolved]
  - Fatigue [Unknown]
  - Diarrhoea [Unknown]
  - Device issue [Recovered/Resolved]
  - Device breakage [Not Recovered/Not Resolved]
  - Insomnia [Not Recovered/Not Resolved]
  - Product quality issue [Recovered/Resolved]
  - Breast tenderness [Recovered/Resolved]
  - Product use in unapproved indication [Not Recovered/Not Resolved]
  - Product adhesion issue [Recovered/Resolved]
  - Adhesive tape use [Recovered/Resolved]
  - Product physical issue [Not Recovered/Not Resolved]

NARRATIVE: CASE EVENT DATE: 202012
